FAERS Safety Report 7475944-7 (Version None)
Quarter: 2011Q2

REPORT INFORMATION
  Report Type: 
  Country: None (occurrence: None)
  Receive Date: 20110504
  Receipt Date: 20110328
  Transmission Date: 20111010
  Serious: Yes (Disabling)
  Sender: FDA-Public Use
  Company Number: 1000020618

PATIENT
  Age: 44 Year
  Sex: Male
  Weight: 97 kg

DRUGS (2)
  1. ESCITALOPRAM [Suspect]
     Indication: DEPRESSION
     Dates: start: 20070212
  2. TYSABRI [Suspect]
     Indication: MULTIPLE SCLEROSIS
     Dosage: (300 MG,EVERY 4-6 WEEKS)
     Dates: start: 20100101

REACTIONS (5)
  - HYPERTENSION [None]
  - DRUG INTERACTION [None]
  - BIRTH MARK [None]
  - EYE PAIN [None]
  - HOT FLUSH [None]
